FAERS Safety Report 5135640-8 (Version None)
Quarter: 2006Q4

REPORT INFORMATION
  Report Type: 
  Country: None (occurrence: None)
  Receive Date: 20061020
  Receipt Date: 20060203
  Transmission Date: 20070319
  Serious: Yes (Hospitalization)
  Sender: FDA-Public Use
  Company Number: 27682

PATIENT
  Age: 82 Year
  Sex: Female

DRUGS (2)
  1. METROGEL [Suspect]
     Indication: VAGINITIS BACTERIAL
     Dosage: 37.5 MG, 1 TOTAL), VAGINAL
     Route: 067
     Dates: start: 20040702, end: 20040702
  2. HYPERTENSION MEDICATION [Concomitant]

REACTIONS (4)
  - CELLULITIS [None]
  - DRY SKIN [None]
  - RASH [None]
  - SKIN IRRITATION [None]
